FAERS Safety Report 23814828 (Version 1)
Quarter: 2024Q2

REPORT INFORMATION
  Report Type: Spontaneous
  Country: US (occurrence: None)
  Receive Date: 20240502
  Receipt Date: 20240502
  Transmission Date: 20240716
  Serious: No
  Sender: FDA-Public Use
  Company Number: None

PATIENT
  Age: 74 Year
  Sex: Female
  Weight: 88.45 kg

DRUGS (5)
  1. MUCUS RELIEF D [Suspect]
     Active Substance: GUAIFENESIN\PSEUDOEPHEDRINE HYDROCHLORIDE
     Indication: Ear pain
     Dosage: 2 TABLETS EVERY 12 HR   MOUTH?? AS OF TODAY 4-25-24 MY EAR IS STILL HURTING
     Route: 048
     Dates: start: 20240410, end: 20240414
  2. VIT. B-COMPLEX [Concomitant]
  3. VITAMIN D3 [Concomitant]
     Active Substance: CHOLECALCIFEROL
  4. MELATONIN [Concomitant]
     Active Substance: MELATONIN
  5. TYLENOL (EQUATE) [Concomitant]

REACTIONS (1)
  - Drug ineffective [None]

NARRATIVE: CASE EVENT DATE: 20240410
